FAERS Safety Report 23217440 (Version 1)
Quarter: 2023Q4

REPORT INFORMATION
  Report Type: Spontaneous
  Country: US (occurrence: None)
  Receive Date: 20231121
  Receipt Date: 20231121
  Transmission Date: 20240109
  Serious: Yes (Hospitalization, Disabling)
  Sender: FDA-Public Use
  Company Number: None

PATIENT
  Age: 27 Year
  Sex: Female
  Weight: 60.75 kg

DRUGS (5)
  1. LATUDA [Suspect]
     Active Substance: LURASIDONE HYDROCHLORIDE
     Indication: Depression
     Dosage: OTHER QUANTITY : 1 TABLET(S);?FREQUENCY : AT BEDTIME;?
     Route: 048
     Dates: start: 20191019, end: 20231119
  2. ONDANSETRON [Concomitant]
     Active Substance: ONDANSETRON
  3. GABAPENTIN [Concomitant]
     Active Substance: GABAPENTIN
  4. MELATONIN [Concomitant]
     Active Substance: MELATONIN
  5. VITAMIN D [Concomitant]
     Active Substance: VITAMIN D NOS

REACTIONS (5)
  - Nystagmus [None]
  - Epilepsy [None]
  - Tardive dyskinesia [None]
  - Therapy cessation [None]
  - Joint lock [None]

NARRATIVE: CASE EVENT DATE: 20231120
